FAERS Safety Report 15545469 (Version 1)
Quarter: 2018Q4

REPORT INFORMATION
  Report Type: Spontaneous
  Country: CH (occurrence: CH)
  Receive Date: 20181024
  Receipt Date: 20181024
  Transmission Date: 20190205
  Serious: Yes (Other)
  Sender: FDA-Public Use
  Company Number: CH-IPSEN BIOPHARMACEUTICALS, INC.-2018-16159

PATIENT
  Age: 77 Year
  Sex: Male
  Weight: 116 kg

DRUGS (2)
  1. CABOMETYX [Suspect]
     Active Substance: CABOZANTINIB S-MALATE
     Indication: HEPATOCELLULAR CARCINOMA
     Dosage: 40 MG, QOD (EVERY SECOND DAY)
     Route: 048
     Dates: start: 20180914, end: 20181001
  2. CABOMETYX [Suspect]
     Active Substance: CABOZANTINIB S-MALATE
     Dosage: 40 MG, QOD (EVERY SECOND DAY)
     Route: 048
     Dates: start: 20181012

REACTIONS (3)
  - Hyperammonaemic encephalopathy [Recovered/Resolved]
  - Hepatic failure [Recovered/Resolved]
  - Off label use [Unknown]

NARRATIVE: CASE EVENT DATE: 20180930
